FAERS Safety Report 5484134-9 (Version None)
Quarter: 2007Q4

REPORT INFORMATION
  Report Type: 
  Country: None (occurrence: None)
  Receive Date: 20071012
  Receipt Date: 20071009
  Transmission Date: 20080405
  Serious: Yes (Hospitalization)
  Sender: FDA-Public Use
  Company Number: NL-JNJFOC-20071002534

PATIENT
  Sex: Male

DRUGS (2)
  1. RISPERDAL [Suspect]
     Indication: AUTISM
  2. RISPERDAL [Suspect]

REACTIONS (2)
  - DYSTONIA [None]
  - INCORRECT DOSE ADMINISTERED [None]
